FAERS Safety Report 5442329-4 (Version None)
Quarter: 2007Q3

REPORT INFORMATION
  Report Type: 
  Country: None (occurrence: None)
  Receive Date: 20070904
  Receipt Date: 20070824
  Transmission Date: 20080115
  Serious: Yes (Hospitalization)
  Sender: FDA-Public Use
  Company Number: US-PFIZER INC-2007049026

PATIENT
  Sex: Male

DRUGS (5)
  1. PREDNISONE [Suspect]
     Indication: PSORIATIC ARTHROPATHY
     Dosage: TEXT:5 TO 15 MG DAILY
  2. ETANERCEPT [Suspect]
     Indication: PSORIATIC ARTHROPATHY
     Dosage: DAILY DOSE:50MG
     Route: 058
  3. NAPROXEN [Concomitant]
  4. LACTULOSE [Concomitant]
  5. TOPROL-XL [Concomitant]

REACTIONS (3)
  - ARTHRALGIA [None]
  - HAEMATOCRIT DECREASED [None]
  - OSTEONECROSIS [None]
